FAERS Safety Report 12297905 (Version 1)
Quarter: 2016Q2

REPORT INFORMATION
  Report Type: Spontaneous
  Country: GR (occurrence: GR)
  Receive Date: 20160422
  Receipt Date: 20160422
  Transmission Date: 20160815
  Serious: Yes (Hospitalization, Other)
  Sender: FDA-Public Use
  Company Number: GR-PFIZER INC-2016218224

PATIENT
  Age: 83 Year
  Weight: 75 kg

DRUGS (3)
  1. TRILEPTAL [Concomitant]
     Active Substance: OXCARBAZEPINE
     Indication: POST-TRAUMATIC EPILEPSY
     Dosage: 600 MG, UNK
  2. EPANUTIN [Suspect]
     Active Substance: PHENYTOIN SODIUM
     Indication: POST-TRAUMATIC EPILEPSY
     Dosage: 200 MG, UNK
  3. PHENOBARBITAL. [Concomitant]
     Active Substance: PHENOBARBITAL
     Indication: POST-TRAUMATIC EPILEPSY
     Dosage: 100 MG, UNK

REACTIONS (3)
  - Epilepsy [Unknown]
  - Anticonvulsant drug level below therapeutic [Unknown]
  - Cardiac disorder [Unknown]
